FAERS Safety Report 5108420-7 (Version None)
Quarter: 2006Q3

REPORT INFORMATION
  Report Type: 
  Country: None (occurrence: None)
  Receive Date: 20060915
  Receipt Date: 20060901
  Transmission Date: 20061208
  Serious: Yes (Hospitalization, Other)
  Sender: FDA-Public Use
  Company Number: 2006AL002643

PATIENT
  Age: 31 Year
  Sex: Female

DRUGS (5)
  1. CLONAZEPAM [Suspect]
  2. DULOXETINE [Concomitant]
  3. PAROXETINE HCL [Concomitant]
  4. BUPROPION HCL [Concomitant]
  5. SEROQUEL [Concomitant]

REACTIONS (9)
  - ACUTE MYOCARDIAL INFARCTION [None]
  - CLONUS [None]
  - CONFUSIONAL STATE [None]
  - MENTAL STATUS CHANGES [None]
  - MUSCLE TWITCHING [None]
  - NYSTAGMUS [None]
  - SEROTONIN SYNDROME [None]
  - SOMNOLENCE [None]
  - TREMOR [None]
